FAERS Safety Report 9236290 (Version 1)
Quarter: 2013Q2

REPORT INFORMATION
  Report Type: Spontaneous
  Country: US (occurrence: US)
  Receive Date: 20130417
  Receipt Date: 20130417
  Transmission Date: 20140414
  Serious: No
  Sender: FDA-Public Use
  Company Number: US-BAYER-2013-048063

PATIENT
  Age: 87 Year
  Sex: Female
  Weight: 77 kg

DRUGS (5)
  1. ALEVE CAPLET [Suspect]
     Indication: BACK PAIN
     Dosage: 1 DF, PRN
     Route: 048
     Dates: start: 201304, end: 20130409
  2. VITAMIN D [Concomitant]
  3. TAMOXIFEN [Concomitant]
  4. BAYER ASPIRIN REGIMEN ADULT LOW STRENGTH [Concomitant]
     Indication: ISCHAEMIC HEART DISEASE PROPHYLAXIS
  5. SYNTHROID [Concomitant]

REACTIONS (1)
  - Throat irritation [Recovered/Resolved]
